FAERS Safety Report 6667150-0 (Version None)
Quarter: 2010Q2

REPORT INFORMATION
  Report Type: 
  Country: None (occurrence: None)
  Receive Date: 20100405
  Receipt Date: 20100326
  Transmission Date: 20101027
  Serious: Yes (Other)
  Sender: FDA-Public Use
  Company Number: JP-JNJFOC-20100208435

PATIENT
  Age: 94 Year
  Sex: Male

DRUGS (8)
  1. RISPERDAL [Suspect]
     Indication: DEMENTIA
     Route: 048
  2. RISPERDAL [Suspect]
     Route: 048
  3. RISPERDAL [Suspect]
     Route: 048
  4. SEROQUEL [Suspect]
     Indication: DEMENTIA
     Route: 048
  5. CANDESARTAN CILEXETIL [Concomitant]
     Route: 048
  6. MAGMITT [Concomitant]
     Route: 048
  7. LASIX [Concomitant]
     Route: 048
  8. GLYSENNID [Concomitant]
     Route: 048

REACTIONS (3)
  - DROOLING [None]
  - EYE ROLLING [None]
  - FALL [None]
